FAERS Safety Report 19359859 (Version 1)
Quarter: 2021Q2

REPORT INFORMATION
  Report Type: Spontaneous
  Country: DE (occurrence: DE)
  Receive Date: 20210601
  Receipt Date: 20210601
  Transmission Date: 20210717
  Serious: Yes (Other)
  Sender: FDA-Public Use
  Company Number: NVSC2021DE121121

PATIENT
  Sex: Male

DRUGS (5)
  1. TASIGNA [Suspect]
     Active Substance: NILOTINIB
     Dosage: 150 MG (3?0?0)
     Route: 065
     Dates: start: 2020
  2. TASIGNA [Suspect]
     Active Substance: NILOTINIB
     Indication: CHRONIC MYELOID LEUKAEMIA
     Dosage: 300 MG (2X)
     Route: 065
     Dates: start: 2014
  3. AMLODIPIN HEXAL [AMLODIPINE MALEATE] [Suspect]
     Active Substance: AMLODIPINE MALEATE
     Indication: HYPERTENSION
     Dosage: HALF TABLET ONCE
     Route: 065
     Dates: start: 20210525, end: 20210525
  4. TASIGNA [Suspect]
     Active Substance: NILOTINIB
     Dosage: 150 MG (3?0?0)
     Route: 065
  5. RAMILICH [Concomitant]
     Active Substance: RAMIPRIL
     Indication: BLOOD PRESSURE ABNORMAL
     Dosage: 5 MG (1?0?1)
     Route: 065

REACTIONS (7)
  - Rash [Unknown]
  - Condition aggravated [Unknown]
  - Gamma-glutamyltransferase increased [Unknown]
  - Neoplasm malignant [Unknown]
  - Blood bilirubin increased [Unknown]
  - Blood glucose increased [Unknown]
  - Drug ineffective [Unknown]

NARRATIVE: CASE EVENT DATE: 202105
